FAERS Safety Report 5089997-7 (Version None)
Quarter: 2006Q3

REPORT INFORMATION
  Report Type: 
  Country: None (occurrence: None)
  Receive Date: 20060828
  Receipt Date: 20060825
  Transmission Date: 20061208
  Serious: Yes (Death, Hospitalization)
  Sender: FDA-Public Use
  Company Number: PHRM2006FR02399

PATIENT
  Age: 55 Year
  Sex: Male
  Weight: 75 kg

DRUGS (10)
  1. NEORAL [Suspect]
     Indication: GRAFT VERSUS HOST DISEASE
     Dosage: 0.5 ML PER DAY0.5
     Route: 048
     Dates: start: 20040501
  2. CISPLATIN [Suspect]
     Route: 042
     Dates: start: 20060601, end: 20060601
  3. GEMZAR [Suspect]
     Route: 042
     Dates: start: 20060601, end: 20060629
  4. CARBOPLATIN [Suspect]
     Route: 042
     Dates: start: 20060622, end: 20060622
  5. CORTANCYL [Concomitant]
     Dates: start: 20040501
  6. BACTRIM DS [Concomitant]
     Dates: start: 20040501
  7. ZELITREX /NET/ [Concomitant]
  8. TRIFLUCAN [Concomitant]
     Dates: start: 20040501
  9. CACIT D3 [Concomitant]
     Dates: start: 20040501
  10. FLECAINIDE ACETATE [Concomitant]
     Dates: start: 20060328

REACTIONS (9)
  - ANAEMIA [None]
  - CIRCULATORY COLLAPSE [None]
  - GENERAL PHYSICAL HEALTH DETERIORATION [None]
  - HYPERKALAEMIA [None]
  - HYPONATRAEMIA [None]
  - MYOSITIS [None]
  - PAIN IN EXTREMITY [None]
  - RENAL FAILURE ACUTE [None]
  - THROMBOCYTOPENIA [None]
